FAERS Safety Report 5214314-9 (Version None)
Quarter: 2007Q1

REPORT INFORMATION
  Report Type: 
  Country: None (occurrence: None)
  Receive Date: 20070122
  Receipt Date: 20070111
  Transmission Date: 20070707
  Serious: Yes (Hospitalization)
  Sender: FDA-Public Use
  Company Number: JP-MERCK-0611USA00753

PATIENT
  Age: 21 Year
  Sex: Female
  Weight: 62 kg

DRUGS (7)
  1. COZAAR [Suspect]
     Indication: LUPUS NEPHRITIS
     Route: 048
     Dates: start: 20061020, end: 20061031
  2. ACTONEL [Suspect]
     Indication: OSTEOPOROSIS
     Route: 048
     Dates: start: 20061002, end: 20061031
  3. PERSANTIN [Concomitant]
     Route: 065
     Dates: end: 20061101
  4. SUCRALFATE [Concomitant]
     Route: 048
     Dates: end: 20061101
  5. PREDONINE [Concomitant]
     Route: 048
     Dates: end: 20061101
  6. BREDININ [Suspect]
     Indication: SYSTEMIC LUPUS ERYTHEMATOSUS
     Route: 048
     Dates: start: 20061024, end: 20061031
  7. BREDININ [Suspect]
     Route: 048
     Dates: start: 20061129

REACTIONS (1)
  - THROMBOTIC THROMBOCYTOPENIC PURPURA [None]
